FAERS Safety Report 15532591 (Version 1)
Quarter: 2018Q4

REPORT INFORMATION
  Report Type: Spontaneous
  Country: US (occurrence: US)
  Receive Date: 20181019
  Receipt Date: 20181019
  Transmission Date: 20190205
  Serious: No
  Sender: FDA-Public Use
  Company Number: US-AMGEN-USASP2018145199

PATIENT
  Sex: Female

DRUGS (1)
  1. ENBREL [Suspect]
     Active Substance: ETANERCEPT
     Indication: RHEUMATOID ARTHRITIS
     Dosage: UNK
     Route: 065

REACTIONS (7)
  - Drug ineffective [Unknown]
  - Dyspepsia [Unknown]
  - Musculoskeletal disorder [Unknown]
  - Joint range of motion decreased [Unknown]
  - Arthralgia [Unknown]
  - Pain in extremity [Unknown]
  - Fatigue [Unknown]
